FAERS Safety Report 6167786-X (Version None)
Quarter: 2009Q2

REPORT INFORMATION
  Report Type: 
  Country: None (occurrence: None)
  Receive Date: 20090427
  Receipt Date: 20090420
  Transmission Date: 20091009
  Serious: No
  Sender: FDA-Public Use
  Company Number: US-JNJFOC-20090405215

PATIENT
  Sex: Female
  Weight: 68.04 kg

DRUGS (12)
  1. FENTANYL TRANSDERMAL SYSTEM [Suspect]
     Indication: CANCER PAIN
     Route: 062
  2. METOPROLOL TARTRATE [Concomitant]
     Indication: BLOOD PRESSURE
     Route: 048
  3. LEVOTHYROXINE SODIUM [Concomitant]
     Indication: THYROID DISORDER
     Route: 048
  4. HYDROCHLOROTHIAZIDE [Concomitant]
     Indication: BLOOD PRESSURE
     Route: 048
  5. EFFEXOR [Concomitant]
     Indication: DEPRESSION
     Dosage: 75 MG
     Route: 048
  6. POTASSIUM CHLORIDE [Concomitant]
     Indication: NUTRITIONAL SUPPORT
     Dosage: 20 MG/2 TABLETS/DAILY
     Route: 048
  7. LYRICA [Concomitant]
     Indication: NEURALGIA
     Route: 048
  8. PRILOSEC [Concomitant]
     Indication: NAUSEA
     Route: 048
  9. PRILOSEC [Concomitant]
     Indication: ABDOMINAL DISCOMFORT
     Route: 048
  10. COMPAZINE [Concomitant]
     Indication: NAUSEA
     Route: 048
  11. FRAGMIN [Concomitant]
     Indication: ANTICOAGULANT THERAPY
     Dosage: 10,000 U/DAILY
     Route: 058
  12. ZOFRAN [Concomitant]
     Indication: NAUSEA
     Dosage: EVERY 6 HOURS AS NEEDED
     Route: 048

REACTIONS (1)
  - WRONG TECHNIQUE IN DRUG USAGE PROCESS [None]
